FAERS Safety Report 7611632-1 (Version None)
Quarter: 2011Q3

REPORT INFORMATION
  Report Type: 
  Country: None (occurrence: None)
  Receive Date: 20110715
  Receipt Date: 20110708
  Transmission Date: 20111222
  Serious: Yes (Death, Hospitalization)
  Sender: FDA-Public Use
  Company Number: US-ACTELION-A-US2011-51098

PATIENT

DRUGS (2)
  1. VENTAVIS [Suspect]
     Indication: PULMONARY ARTERIAL HYPERTENSION
     Dosage: UNK
     Route: 055
     Dates: start: 20110614
  2. REVATIO [Concomitant]

REACTIONS (4)
  - RESPIRATORY FAILURE [None]
  - DISEASE PROGRESSION [None]
  - PULMONARY HYPERTENSION [None]
  - OEDEMA [None]
